FAERS Safety Report 15753516 (Version 1)
Quarter: 2018Q4

REPORT INFORMATION
  Report Type: Spontaneous
  Country: US (occurrence: US)
  Receive Date: 20181222
  Receipt Date: 20181222
  Transmission Date: 20190205
  Serious: No
  Sender: FDA-Public Use
  Company Number: US-MALLINCKRODT-T201703270

PATIENT
  Sex: Female

DRUGS (2)
  1. FENTANYL TRANSDERMAL SYSTEM [Suspect]
     Active Substance: FENTANYL
     Indication: PRODUCT USED FOR UNKNOWN INDICATION
     Dosage: 100 MCG/HR ONE-HALF PATCH EVERY 24 HOURS
     Route: 062
     Dates: start: 2004
  2. FENTANYL TRANSDERMAL SYSTEM [Suspect]
     Active Substance: FENTANYL
     Indication: CROHN^S DISEASE
     Dosage: 50 MCG/H, EVERY 24H (PER PATIENT, HER DOCTOR ADVISED HER TO CUT 100 MCG/H PATCH IN HALF AND USE
     Route: 062
     Dates: start: 2014

REACTIONS (9)
  - Blister [Unknown]
  - Wound complication [Unknown]
  - Hyperhidrosis [Unknown]
  - Drug effect incomplete [Unknown]
  - Product adhesion issue [Unknown]
  - Skin burning sensation [Not Recovered/Not Resolved]
  - Wound secretion [Unknown]
  - Withdrawal syndrome [Unknown]
  - Pruritus [Unknown]
